FAERS Safety Report 6333087-X (Version None)
Quarter: 2009Q3

REPORT INFORMATION
  Report Type: 
  Country: None (occurrence: None)
  Receive Date: 20090827
  Receipt Date: 20090827
  Transmission Date: 20100115
  Serious: No
  Sender: FDA-Public Use
  Company Number: None

PATIENT
  Age: 34 Year

DRUGS (1)
  1. TOPAMAX [Suspect]
     Dosage: TABLET
     Route: 048

REACTIONS (13)
  - ANXIETY [None]
  - CONVULSION [None]
  - DEPRESSION [None]
  - FALL [None]
  - FEAR [None]
  - FEELING ABNORMAL [None]
  - GRIP STRENGTH DECREASED [None]
  - INSOMNIA [None]
  - LOSS OF CONSCIOUSNESS [None]
  - MEDICATION ERROR [None]
  - MUSCLE SPASMS [None]
  - SPEECH DISORDER [None]
  - THINKING ABNORMAL [None]
